FAERS Safety Report 20885455 (Version 3)
Quarter: 2022Q3

REPORT INFORMATION
  Report Type: Report from Study
  Country: KW (occurrence: KW)
  Receive Date: 20220527
  Receipt Date: 20220817
  Transmission Date: 20221027
  Serious: Yes (Other)
  Sender: FDA-Public Use
  Company Number: KW-JNJFOC-20220548391

PATIENT
  Age: 49 Year
  Sex: Male

DRUGS (2)
  1. BORTEZOMIB [Suspect]
     Active Substance: BORTEZOMIB
     Indication: Plasma cell myeloma
     Dosage: 2.5 MILLIGRAM, 2/WEEK
     Route: 042
     Dates: start: 20211101, end: 20220522
  2. BORTEZOMIB [Suspect]
     Active Substance: BORTEZOMIB
     Dosage: 2.5 MILLIGRAM, 1/WEEK
     Route: 042

REACTIONS (1)
  - Bone marrow transplant [Unknown]

NARRATIVE: CASE EVENT DATE: 20220522
